FAERS Safety Report 10550477 (Version 1)
Quarter: 2014Q4

REPORT INFORMATION
  Report Type: Spontaneous
  Country: US (occurrence: US)
  Receive Date: 20141029
  Receipt Date: 20141029
  Transmission Date: 20150529
  Serious: No
  Sender: FDA-Public Use
  Company Number: US-TEVA-474441USA

PATIENT
  Age: 25 Year
  Sex: Female
  Weight: 46.31 kg

DRUGS (6)
  1. SERTRALINE [Concomitant]
     Active Substance: SERTRALINE HYDROCHLORIDE
     Indication: DEPRESSION
  2. PROVIGIL [Suspect]
     Active Substance: MODAFINIL
     Dates: start: 20140315
  3. FIORICET [Concomitant]
     Active Substance: ACETAMINOPHEN\BUTALBITAL\CAFFEINE
     Indication: TENSION HEADACHE
  4. PROVIGIL [Suspect]
     Active Substance: MODAFINIL
     Indication: HYPERSOMNIA
  5. SERTRALINE [Concomitant]
     Active Substance: SERTRALINE HYDROCHLORIDE
     Indication: ANXIETY
  6. TIZANIDINE (TIZANIDINE) [Concomitant]
     Active Substance: TIZANIDINE
     Indication: MUSCLE SPASMS

REACTIONS (4)
  - Adverse event [Not Recovered/Not Resolved]
  - Therapeutic response unexpected [Unknown]
  - Drug ineffective [Unknown]
  - Somnolence [Not Recovered/Not Resolved]
